FAERS Safety Report 18356478 (Version 4)
Quarter: 2024Q4

REPORT INFORMATION
  Report Type: Spontaneous
  Country: DE (occurrence: DE)
  Receive Date: 20201007
  Receipt Date: 20241003
  Transmission Date: 20250115
  Serious: Yes (Other)
  Sender: ROCHE
  Company Number: DE-ROCHE-2669682

PATIENT
  Age: 34 Year
  Sex: Female
  Weight: 115.0 kg

DRUGS (6)
  1. OCREVUS [Suspect]
     Active Substance: OCRELIZUMAB
     Indication: Multiple sclerosis
     Route: 042
     Dates: start: 201711
  2. OCREVUS [Suspect]
     Active Substance: OCRELIZUMAB
     Route: 042
     Dates: start: 202006
  3. GABAPENTIN [Concomitant]
     Active Substance: GABAPENTIN
     Indication: Pain
     Route: 048
  4. CITALOPRAM [Concomitant]
     Active Substance: CITALOPRAM
     Indication: Depression
     Route: 048
  5. PHENOXYBENZAMINE HYDROCHLORIDE [Concomitant]
     Active Substance: PHENOXYBENZAMINE HYDROCHLORIDE
     Indication: Urinary incontinence
     Route: 048
  6. DOXEPIN [Concomitant]
     Active Substance: DOXEPIN
     Route: 048

REACTIONS (3)
  - Hidradenitis [Unknown]
  - Multiple sclerosis relapse [Unknown]
  - Alopecia areata [Unknown]
